FAERS Safety Report 5461028-6 (Version None)
Quarter: 2007Q3

REPORT INFORMATION
  Report Type: 
  Country: None (occurrence: None)
  Receive Date: 20070810
  Receipt Date: 20070529
  Transmission Date: 20080115
  Serious: Yes (Death, Other)
  Sender: FDA-Public Use
  Company Number: 200711693BWH

PATIENT
  Age: 78 Year
  Sex: Female

DRUGS (2)
  1. TRASYLOL [Suspect]
     Indication: AORTIC VALVE REPLACEMENT
     Dosage: INTRAVENOUS
     Route: 042
     Dates: start: 20050425
  2. TRASYLOL [Suspect]
     Indication: CORONARY ARTERY BYPASS
     Dosage: INTRAVENOUS
     Route: 042
     Dates: start: 20050425

REACTIONS (3)
  - DEATH [None]
  - MULTI-ORGAN FAILURE [None]
  - POSTOPERATIVE RENAL FAILURE [None]
